FAERS Safety Report 20952789 (Version 1)
Quarter: 2022Q2

REPORT INFORMATION
  Report Type: Spontaneous
  Country: US (occurrence: None)
  Receive Date: 20220613
  Receipt Date: 20220613
  Transmission Date: 20220720
  Serious: Yes (Other)
  Sender: FDA-Public Use
  Company Number: None

PATIENT
  Age: 57 Year
  Sex: Male
  Weight: 101 kg

DRUGS (2)
  1. KORSUVA [Suspect]
     Active Substance: DIFELIKEFALIN ACETATE
     Indication: Pruritus
     Dosage: OTHER FREQUENCY : 3 TIMES WEEKLY;?
     Route: 042
     Dates: start: 20220606, end: 20220606
  2. KORSUVA [Concomitant]
     Active Substance: DIFELIKEFALIN ACETATE
     Dates: start: 20220606, end: 20220606

REACTIONS (2)
  - Dialysis [None]
  - Dyspnoea [None]

NARRATIVE: CASE EVENT DATE: 20220606
